FAERS Safety Report 12236953 (Version 1)
Quarter: 2016Q2

REPORT INFORMATION
  Report Type: Other
  Country: UA (occurrence: UA)
  Receive Date: 20160405
  Receipt Date: 20160405
  Transmission Date: 20160815
  Serious: Yes (Hospitalization)
  Sender: FDA-Public Use
  Company Number: UA-CIPLA LTD.-2016UA03252

PATIENT

DRUGS (4)
  1. EFAVIRENZ [Suspect]
     Active Substance: EFAVIRENZ
     Indication: HIV INFECTION
     Dosage: 15 MG/KG, QD
     Route: 048
     Dates: start: 20111223
  2. LAMIVUDINE. [Suspect]
     Active Substance: LAMIVUDINE
     Indication: HIV INFECTION
     Dosage: 4 MG/KG, BID
     Route: 048
     Dates: start: 20111223
  3. ZIDOVUDINE. [Suspect]
     Active Substance: ZIDOVUDINE
     Indication: HIV INFECTION
     Dosage: 200 MG, BID
     Route: 048
     Dates: start: 20111223
  4. LAMIVUDINE/ZIDOVUDINE [Suspect]
     Active Substance: LAMIVUDINE\ZIDOVUDINE
     Indication: HIV INFECTION
     Dosage: 1 PILL, BID
     Route: 048
     Dates: start: 20111223

REACTIONS (1)
  - Anaemia [Recovered/Resolved]

NARRATIVE: CASE EVENT DATE: 20120329
